FAERS Safety Report 13262188 (Version 1)
Quarter: 2017Q1

REPORT INFORMATION
  Report Type: Spontaneous
  Country: TR (occurrence: TR)
  Receive Date: 20170222
  Receipt Date: 20170222
  Transmission Date: 20170428
  Serious: Yes (Other)
  Sender: FDA-Public Use
  Company Number: TR-ALLERGAN-1706847US

PATIENT
  Age: 52 Year
  Sex: Female

DRUGS (2)
  1. DEX UNK [Suspect]
     Active Substance: UNSPECIFIED INGREDIENT
     Indication: MACULAR OEDEMA
     Dosage: 0.7 MG, SINGLE
     Route: 031
  2. DEX UNK [Suspect]
     Active Substance: UNSPECIFIED INGREDIENT
     Indication: RETINAL VEIN OCCLUSION

REACTIONS (1)
  - Eyelid ptosis [Not Recovered/Not Resolved]
